FAERS Safety Report 6894438-0 (Version None)
Quarter: 2010Q3

REPORT INFORMATION
  Report Type: 
  Country: None (occurrence: None)
  Receive Date: 20100728
  Receipt Date: 20100713
  Transmission Date: 20110219
  Serious: Yes (Hospitalization)
  Sender: FDA-Public Use
  Company Number: 2010RR-35240

PATIENT
  Age: 14 Year
  Sex: Male

DRUGS (3)
  1. AMLOR (AMLODIPINE) UNKNOWN [Suspect]
     Indication: HYPERTENSION
     Dosage: 10 MG 30 MG
  2. PROGRAF [Suspect]
     Dosage: 0.1 MG/KG 0.03 MG/KG
  3. AZATHIOPRINE [Concomitant]

REACTIONS (8)
  - DIARRHOEA [None]
  - DRUG INTERACTION [None]
  - DRUG TOXICITY [None]
  - GASTROENTERITIS VIRAL [None]
  - HAEMODIALYSIS [None]
  - KIDNEY TRANSPLANT REJECTION [None]
  - NEPHROPATHY TOXIC [None]
  - RENAL FAILURE ACUTE [None]
